FAERS Safety Report 7376241-0 (Version None)
Quarter: 2011Q1

REPORT INFORMATION
  Report Type: 
  Country: None (occurrence: None)
  Receive Date: 20110325
  Receipt Date: 20110318
  Transmission Date: 20110831
  Serious: Yes (Other)
  Sender: FDA-Public Use
  Company Number: CA-PFIZER INC-2011000658

PATIENT
  Age: 71 Year
  Sex: Female

DRUGS (3)
  1. TECTA [Suspect]
     Dosage: 40 MG, 1X/DAY
     Dates: start: 20101019, end: 20101031
  2. TECTA [Suspect]
     Dosage: 40 MG, 2X/DAY
     Dates: start: 20101015, end: 20101015
  3. NORVASC [Concomitant]

REACTIONS (3)
  - DYSPEPSIA [None]
  - BONE PAIN [None]
  - MYALGIA [None]
